FAERS Safety Report 17868812 (Version 1)
Quarter: 2020Q2

REPORT INFORMATION
  Report Type: Spontaneous
  Country: IT (occurrence: IT)
  Receive Date: 20200607
  Receipt Date: 20200607
  Transmission Date: 20200714
  Serious: Yes (Other)
  Sender: FDA-Public Use
  Company Number: NVSC2020IT157863

PATIENT
  Age: 56 Year
  Sex: Male

DRUGS (9)
  1. METHYLPREDNISOLONE. [Suspect]
     Active Substance: METHYLPREDNISOLONE
     Indication: SKIN TEST
     Dosage: UNK
     Route: 065
  2. DEXAMETHASONE 21 [Suspect]
     Active Substance: DEXAMETHASONE SODIUM PHOSPHATE
     Indication: SKIN TEST
     Route: 065
  3. TRIAMCINOLONE [Suspect]
     Active Substance: TRIAMCINOLONE
     Indication: SKIN TEST
     Dosage: UNK
     Route: 065
  4. TRIAMCINOLONE ACETONIDE. [Suspect]
     Active Substance: TRIAMCINOLONE ACETONIDE
     Indication: SKIN TEST
     Dosage: UNK
     Route: 065
  5. BUDESONIDE. [Suspect]
     Active Substance: BUDESONIDE
     Indication: PRODUCT USED FOR UNKNOWN INDICATION
     Dosage: UNK
     Route: 065
  6. PREDNISONE. [Suspect]
     Active Substance: PREDNISONE
     Indication: SKIN TEST
     Dosage: UNK
     Route: 065
  7. METHYLPREDNISOLONE SODIUM SUCCINATE. [Suspect]
     Active Substance: METHYLPREDNISOLONE SODIUM SUCCINATE
     Indication: SKIN TEST
     Dosage: UNK
     Route: 065
  8. DEXAMETHASONE. [Suspect]
     Active Substance: DEXAMETHASONE
     Indication: SKIN TEST
     Dosage: UNK
     Route: 065
  9. FLUOCORTOLONE [Suspect]
     Active Substance: FLUOCORTOLONE
     Indication: SKIN TEST
     Dosage: UNK
     Route: 065

REACTIONS (2)
  - Therapeutic product cross-reactivity [Unknown]
  - Dermatitis contact [Unknown]
